FAERS Safety Report 10666522 (Version 3)
Quarter: 2015Q1

REPORT INFORMATION
  Report Type: Spontaneous
  Country: US (occurrence: US)
  Receive Date: 20141221
  Receipt Date: 20150129
  Transmission Date: 20150720
  Serious: Yes (Hospitalization, Other)
  Sender: FDA-Public Use
  Company Number: US-GLAXOSMITHKLINE-US2014037780

PATIENT
  Sex: Female

DRUGS (13)
  1. ROPINIROLE. [Concomitant]
     Active Substance: ROPINIROLE
  2. FUROSEMIDE. [Concomitant]
     Active Substance: FUROSEMIDE
  3. VENTOLIN HFA [Suspect]
     Active Substance: ALBUTEROL SULFATE
     Indication: CHRONIC OBSTRUCTIVE PULMONARY DISEASE
  4. EXCEDRIN [Concomitant]
     Active Substance: ACETAMINOPHEN\ASPIRIN\CAFFEINE
  5. LISINOPRIL. [Concomitant]
     Active Substance: LISINOPRIL
  6. RISPERIDONE. [Concomitant]
     Active Substance: RISPERIDONE
  7. TUMS [Concomitant]
     Active Substance: CALCIUM CARBONATE
  8. VENTOLIN HFA [Suspect]
     Active Substance: ALBUTEROL SULFATE
     Indication: ASTHMA
     Dosage: UNK, PRN
     Route: 055
  9. VENTOLIN HFA [Suspect]
     Active Substance: ALBUTEROL SULFATE
     Indication: EMPHYSEMA
  10. CENTRUM SILVER [Concomitant]
     Active Substance: VITAMINS
  11. PRAVASTATIN [Concomitant]
     Active Substance: PRAVASTATIN\PRAVASTATIN SODIUM
  12. SPIRIVA [Concomitant]
     Active Substance: TIOTROPIUM BROMIDE MONOHYDRATE
  13. TYLENOL WITH CODEINE #3 (ACETAMINOPHEN + CODEINE) [Concomitant]

REACTIONS (7)
  - Hypopnoea [Unknown]
  - Pharyngeal oedema [Unknown]
  - Asthma [Unknown]
  - Loss of consciousness [Unknown]
  - Dyspnoea [Unknown]
  - Drug ineffective [Unknown]
  - Choking [Unknown]
